FAERS Safety Report 19800677 (Version 2)
Quarter: 2022Q1

REPORT INFORMATION
  Report Type: Report from Study
  Country: US (occurrence: US)
  Receive Date: 20210908
  Receipt Date: 20220307
  Transmission Date: 20220423
  Serious: Yes (Hospitalization)
  Sender: FDA-Public Use
  Company Number: US-ABBVIE-21K-163-4066516-00

PATIENT
  Sex: Female

DRUGS (2)
  1. IMBRUVICA [Suspect]
     Active Substance: IBRUTINIB
     Indication: Product used for unknown indication
     Route: 048
  2. IMBRUVICA [Suspect]
     Active Substance: IBRUTINIB
     Indication: Product used for unknown indication
     Route: 048

REACTIONS (6)
  - Myocardial injury [Recovering/Resolving]
  - Traumatic lung injury [Recovering/Resolving]
  - Colitis [Unknown]
  - Pleural effusion [Unknown]
  - Cardiac failure [Unknown]
  - Sepsis [Recovering/Resolving]
